FAERS Safety Report 11474343 (Version 1)
Quarter: 2015Q3

REPORT INFORMATION
  Report Type: Spontaneous
  Country: US (occurrence: None)
  Receive Date: 20150902
  Receipt Date: 20150902
  Transmission Date: 20151125
  Serious: Yes (Hospitalization)
  Sender: FDA-Public Use
  Company Number: A-US2014-104804

PATIENT
  Age: 22 Year
  Sex: Female

DRUGS (6)
  1. VELETRI [Suspect]
     Active Substance: EPOPROSTENOL
     Indication: PULMONARY ARTERIAL HYPERTENSION
     Dosage: PER MIN
     Route: 042
     Dates: start: 20140717
  2. REVATIO (SILDENAFIL CITRATE) [Concomitant]
  3. K-DUR [Concomitant]
     Active Substance: POTASSIUM CHLORIDE
  4. DIGOXIN (DIGOXIN) [Concomitant]
     Active Substance: DIGOXIN
  5. COUMADIN [Concomitant]
     Active Substance: WARFARIN SODIUM
  6. TORSEMIDE (TORSEMIDE) [Concomitant]

REACTIONS (5)
  - Catheter culture negative [None]
  - Blood culture negative [None]
  - Catheter site infection [None]
  - Catheter site rash [None]
  - Catheter site discharge [None]
